FAERS Safety Report 5580406-8 (Version None)
Quarter: 2008Q1

REPORT INFORMATION
  Report Type: 
  Country: None (occurrence: None)
  Receive Date: 20080103
  Receipt Date: 20080102
  Transmission Date: 20080703
  Serious: Yes (Other)
  Sender: FDA-Public Use
  Company Number: A0700947A

PATIENT
  Age: 72 Year
  Sex: Female

DRUGS (5)
  1. ALLI [Suspect]
     Dates: start: 20071224, end: 20071231
  2. CAT'S CLAW [Concomitant]
  3. LOTENSIN [Concomitant]
  4. HYDROCHLOROTHIAZIDE [Concomitant]
  5. SYNTHROID [Concomitant]

REACTIONS (3)
  - ANAL HAEMORRHAGE [None]
  - HAEMATOCHEZIA [None]
  - RECTAL HAEMORRHAGE [None]
